FAERS Safety Report 4312590-8 (Version None)
Quarter: 2004Q1

REPORT INFORMATION
  Report Type: 
  Country: None (occurrence: None)
  Receive Date: 20040303
  Receipt Date: 20030422
  Transmission Date: 20041129
  Serious: Yes (Hospitalization)
  Sender: FDA-Public Use
  Company Number: KII-2003-0007674

PATIENT
  Age: 15 Year
  Sex: Female

DRUGS (1)
  1. MORPHINE SULFATE [Suspect]

REACTIONS (7)
  - BLOOD PRESSURE DIASTOLIC DECREASED [None]
  - HEART RATE INCREASED [None]
  - LOGORRHOEA [None]
  - MEDICATION ERROR [None]
  - MIOSIS [None]
  - MULTIPLE DRUG OVERDOSE [None]
  - VOMITING [None]
